FAERS Safety Report 9013982 (Version 1)
Quarter: 2013Q1

REPORT INFORMATION
  Report Type: Spontaneous
  Country: US (occurrence: None)
  Receive Date: 20130109
  Receipt Date: 20130109
  Transmission Date: 20140127
  Serious: Yes (Disabling)
  Sender: FDA-Public Use
  Company Number: None

PATIENT
  Age: 45 Year
  Sex: Female
  Weight: 54.43 kg

DRUGS (1)
  1. PREDNISONE, 10 MG [Suspect]
     Indication: RESPIRATORY DISORDER
     Route: 048
     Dates: start: 20101117, end: 20110625

REACTIONS (6)
  - Abasia [None]
  - Tremor [None]
  - Muscular weakness [None]
  - Muscle atrophy [None]
  - Muscle spasms [None]
  - Arthralgia [None]
